FAERS Safety Report 7213208-7 (Version None)
Quarter: 2011Q1

REPORT INFORMATION
  Report Type: 
  Country: None (occurrence: None)
  Receive Date: 20110106
  Receipt Date: 20101228
  Transmission Date: 20110831
  Serious: Yes (Hospitalization, Other)
  Sender: FDA-Public Use
  Company Number: US-CELGENEUS-163-21880-10120711

PATIENT
  Sex: Female
  Weight: 97 kg

DRUGS (21)
  1. MELPHALAN [Suspect]
     Indication: AMYLOIDOSIS
     Route: 065
     Dates: start: 20100909, end: 20101203
  2. ALBUTEROL [Concomitant]
     Indication: ASTHMA
     Route: 055
  3. SYNTHROID [Concomitant]
     Indication: HYPOTHYROIDISM
     Route: 065
  4. LASIX [Concomitant]
     Indication: PROPHYLAXIS
     Dosage: 20-40MG
     Route: 065
  5. FLUCONAZOLE [Concomitant]
     Indication: PROPHYLAXIS
     Route: 065
     Dates: end: 20101202
  6. ISONIAZID [Concomitant]
     Indication: PROPHYLAXIS
     Route: 065
  7. DEXAMETHASONE [Suspect]
     Route: 065
     Dates: start: 20101210
  8. METFORMIN HCL [Concomitant]
     Route: 065
  9. LEXAPRO [Concomitant]
     Indication: DEPRESSION
     Route: 065
  10. POTASSIUM CHLORIDE [Concomitant]
     Indication: SUPPLEMENTATION THERAPY
     Route: 065
  11. SYMBICORT [Concomitant]
     Indication: ASTHMA
     Route: 055
  12. ASPIRIN [Concomitant]
     Route: 065
  13. JANUVIA [Concomitant]
     Indication: HYPERTENSION
     Route: 065
     Dates: start: 20101103
  14. LIPITOR [Concomitant]
     Route: 065
  15. MELPHALAN [Suspect]
     Route: 065
     Dates: start: 20101210
  16. DEXAMETHASONE [Suspect]
     Indication: AMYLOIDOSIS
     Route: 065
     Dates: start: 20100909, end: 20101203
  17. REVLIMID [Suspect]
     Indication: AMYLOIDOSIS
     Route: 048
     Dates: start: 20100909, end: 20101203
  18. REVLIMID [Suspect]
     Route: 048
     Dates: start: 20101209
  19. COREG [Concomitant]
     Indication: PROPHYLAXIS
     Route: 065
     Dates: end: 20101202
  20. BENICAR [Concomitant]
     Route: 065
     Dates: end: 20101206
  21. VITAMIIN B-6 [Concomitant]
     Indication: SUPPLEMENTATION THERAPY
     Route: 065

REACTIONS (2)
  - ATRIAL THROMBOSIS [None]
  - ATRIAL FIBRILLATION [None]
